FAERS Safety Report 7236502-2 (Version None)
Quarter: 2011Q1

REPORT INFORMATION
  Report Type: 
  Country: None (occurrence: None)
  Receive Date: 20110120
  Receipt Date: 20110114
  Transmission Date: 20110831
  Serious: Yes (Other)
  Sender: FDA-Public Use
  Company Number: BR-PFIZER INC-2010166026

PATIENT
  Age: 59 Year
  Sex: Female
  Weight: 54 kg

DRUGS (11)
  1. PROPRANOLOL [Concomitant]
     Indication: MITRAL VALVE DISEASE
     Dosage: 20 MG, 1X/DAY
  2. CRESTOR [Concomitant]
     Indication: BLOOD CHOLESTEROL
     Dosage: TWICE WEEKLY
  3. DOLAMIN [Concomitant]
     Indication: RELAXATION THERAPY
     Dosage: WHEN FEELING PAIN
     Dates: start: 19960101
  4. DOLAMIN [Concomitant]
     Indication: BURSITIS
  5. CHAMPIX [Suspect]
     Indication: SMOKING CESSATION THERAPY
     Dosage: UNK
     Route: 048
     Dates: start: 20101117
  6. DOLAMIN [Concomitant]
     Indication: MYALGIA
  7. DOLAMIN [Concomitant]
     Indication: TENDONITIS
  8. CHAMPIX [Suspect]
     Dosage: UNK
     Dates: start: 20101126
  9. CHAMPIX [Suspect]
     Dosage: 1 MG, 2X/DAY (EVERY 12 HOURS)
     Route: 048
     Dates: start: 20100101, end: 20101201
  10. LIPITOR [Concomitant]
     Indication: BLOOD CHOLESTEROL INCREASED
     Dosage: UNK
  11. RIVOTRIL [Concomitant]
     Indication: INSOMNIA
     Dosage: 2 MG, 1X/DAY

REACTIONS (3)
  - AGGRESSION [None]
  - MEMORY IMPAIRMENT [None]
  - DEPENDENCE [None]
